FAERS Safety Report 21062899 (Version 3)
Quarter: 2025Q1

REPORT INFORMATION
  Report Type: Spontaneous
  Country: US (occurrence: US)
  Receive Date: 20220711
  Receipt Date: 20250204
  Transmission Date: 20250408
  Serious: Yes (Hospitalization, Other)
  Sender: NOVO NORDISK
  Company Number: US-NOVOPROD-934942

PATIENT
  Age: 76 Year
  Sex: Female

DRUGS (6)
  1. NOVOLIN R [Suspect]
     Active Substance: INSULIN HUMAN
     Indication: Type 1 diabetes mellitus
     Route: 058
     Dates: end: 20220428
  2. TRESIBA [Suspect]
     Active Substance: INSULIN DEGLUDEC
     Route: 058
     Dates: start: 202209
  3. TRESIBA [Suspect]
     Active Substance: INSULIN DEGLUDEC
     Indication: Type 1 diabetes mellitus
     Route: 058
     Dates: end: 20220428
  4. TRESIBA [Suspect]
     Active Substance: INSULIN DEGLUDEC
     Route: 058
     Dates: start: 20230216
  5. NOVOLOG [Suspect]
     Active Substance: INSULIN ASPART
     Indication: Type 1 diabetes mellitus
     Route: 058
     Dates: start: 20220428
  6. LANTUS [Concomitant]
     Active Substance: INSULIN GLARGINE
     Indication: Product used for unknown indication

REACTIONS (6)
  - Hip fracture [Recovered/Resolved]
  - Balance disorder [Recovered/Resolved]
  - Fall [Recovered/Resolved]
  - Memory impairment [Unknown]
  - Blood glucose increased [Unknown]
  - Hypoacusis [Unknown]

NARRATIVE: CASE EVENT DATE: 20220428
